FAERS Safety Report 4941899-X (Version None)
Quarter: 2006Q1

REPORT INFORMATION
  Report Type: 
  Country: None (occurrence: None)
  Receive Date: 20060313
  Receipt Date: 20060307
  Transmission Date: 20060701
  Serious: Yes (Disabling)
  Sender: FDA-Public Use
  Company Number: AU-MERCK-0603AUS00046

PATIENT
  Age: 60 Year
  Sex: Male

DRUGS (6)
  1. FOSAMAX [Suspect]
     Route: 048
     Dates: start: 20041105
  2. FOSAMAX [Suspect]
     Route: 048
  3. SIMVASTATIN [Concomitant]
     Route: 048
     Dates: start: 20030424
  4. CLOPIDOGREL BISULFATE [Concomitant]
     Route: 048
     Dates: start: 20030401
  5. ATENOLOL [Concomitant]
     Route: 048
     Dates: start: 20020101
  6. HYDROCHLOROTHIAZIDE AND IRBESARTAN [Concomitant]
     Route: 047
     Dates: start: 20050323

REACTIONS (2)
  - HOT FLUSH [None]
  - SOMNOLENCE [None]
